FAERS Safety Report 4732083-3 (Version None)
Quarter: 2005Q3

REPORT INFORMATION
  Report Type: 
  Country: None (occurrence: None)
  Receive Date: 20050722
  Receipt Date: 20050503
  Transmission Date: 20060218
  Serious: Yes (Life-Threatening, Hospitalization)
  Sender: FDA-Public Use
  Company Number: 05P-163-0299940-00

PATIENT
  Age: 11 Year
  Sex: Female

DRUGS (3)
  1. NORVIR [Suspect]
     Indication: HIV INFECTION
     Dosage: 10 CAPSULE , 1 IN 1 D, ORAL
     Route: 048
     Dates: start: 20040101, end: 20050101
  2. SERETIDE MITE (SERETIDE MITE) [Suspect]
     Indication: ASTHMA
     Dosage: 2 PUFF, 1 IN 1 D, INHALATION
     Route: 055
     Dates: start: 20050101, end: 20050101
  3. UNSPECIFIED MEDICATION (UNSPECIFIED MEDICATION) [Concomitant]

REACTIONS (3)
  - ASTHMA [None]
  - CUSHING'S SYNDROME [None]
  - DRUG INTERACTION [None]
